FAERS Safety Report 8493114-0 (Version None)
Quarter: 2012Q3

REPORT INFORMATION
  Report Type: 
  Country: None (occurrence: None)
  Receive Date: 20120706
  Receipt Date: 20091023
  Transmission Date: 20120928
  Serious: Yes (Hospitalization, Other)
  Sender: FDA-Public Use
  Company Number: US-JNJFOC-20120701110

PATIENT
  Sex: Female

DRUGS (5)
  1. CHANTIX [Suspect]
     Indication: PRODUCT USED FOR UNKNOWN INDICATION
     Route: 048
     Dates: start: 20090101
  2. NICOTINE [Concomitant]
     Route: 048
  3. PHENTERMINE [Concomitant]
     Route: 065
     Dates: start: 20090101
  4. NICODERM [Concomitant]
     Route: 065
  5. NICOTROL [Suspect]
     Indication: PRODUCT USED FOR UNKNOWN INDICATION
     Route: 055

REACTIONS (7)
  - DRUG INEFFECTIVE [None]
  - SUICIDE ATTEMPT [None]
  - DYSGEUSIA [None]
  - LIVER INJURY [None]
  - DEPRESSION [None]
  - NAUSEA [None]
  - ADVERSE EVENT [None]
